FAERS Safety Report 25020444 (Version 1)
Quarter: 2025Q1

REPORT INFORMATION
  Report Type: Spontaneous
  Country: US (occurrence: US)
  Receive Date: 20250227
  Receipt Date: 20250227
  Transmission Date: 20250409
  Serious: No
  Sender: PRIMUS PHARMACEUTICALS
  Company Number: US-PRIMUS-2024-US-020421

PATIENT
  Age: 81 Year
  Sex: Male

DRUGS (2)
  1. SERNIVO [Suspect]
     Active Substance: BETAMETHASONE DIPROPIONATE
     Indication: Rash
     Route: 061
     Dates: start: 20230915
  2. CLINDAMYCIN [Suspect]
     Active Substance: CLINDAMYCIN
     Dates: start: 20230915

REACTIONS (4)
  - Rash [Unknown]
  - Product preparation error [Unknown]
  - Incorrect product administration duration [Unknown]
  - Drug ineffective for unapproved indication [Unknown]
